FAERS Safety Report 7508226-5 (Version None)
Quarter: 2011Q2

REPORT INFORMATION
  Report Type: 
  Country: None (occurrence: None)
  Receive Date: 20110527
  Receipt Date: 20110520
  Transmission Date: 20111010
  Serious: Yes (Hospitalization)
  Sender: FDA-Public Use
  Company Number: CH-ASTELLAS-2011EU002938

PATIENT
  Age: 18 Year
  Sex: Female

DRUGS (10)
  1. SANDIMMUNE [Suspect]
     Dosage: 150 MG, BID
     Route: 041
     Dates: start: 20110116, end: 20110120
  2. BACTRIM [Concomitant]
     Dosage: 320 MG, 3XWEEKLY
     Route: 065
     Dates: start: 20110110
  3. URSO FALK [Concomitant]
     Dosage: 250 MG, TID
     Route: 065
  4. LASIX [Concomitant]
     Dosage: 20 MG, QOD
     Route: 042
     Dates: start: 20110119, end: 20110121
  5. CALCIMAGON-D3 [Concomitant]
     Dosage: 500 MG, BID
     Route: 065
     Dates: start: 20110119, end: 20110204
  6. PROGRAF [Suspect]
     Dosage: 0.8 MG, UID/QD
     Route: 041
     Dates: start: 20110122, end: 20110124
  7. CIPROFLOXACIN [Concomitant]
     Dosage: 500 MG, BID
     Route: 048
     Dates: start: 20110110, end: 20110120
  8. ONDANSETRON [Concomitant]
     Dosage: 8 MG, UNKNOWN/D
     Route: 065
     Dates: start: 20110119, end: 20110204
  9. TEMGESIC [Concomitant]
     Dosage: UNK
     Route: 065
  10. TRAMOL [Concomitant]
     Dosage: UNK
     Route: 065

REACTIONS (3)
  - THROMBOTIC MICROANGIOPATHY [None]
  - RENAL FAILURE ACUTE [None]
  - ANURIA [None]
